FAERS Safety Report 12898830 (Version 1)
Quarter: 2016Q4

REPORT INFORMATION
  Report Type: Spontaneous
  Country: AU (occurrence: AU)
  Receive Date: 20161101
  Receipt Date: 20161101
  Transmission Date: 20170207
  Serious: Yes (Life-Threatening, Hospitalization, Other)
  Sender: FDA-Public Use
  Company Number: AU-STRIDES ARCOLAB LIMITED-2016SP016636

PATIENT

DRUGS (2)
  1. IBUPROFEN. [Suspect]
     Active Substance: IBUPROFEN
     Indication: DENTAL CARIES
     Dosage: UNK (9.6?14.4 G/DAY OF IBUPROFEN (ABOUT 50 TABLETS PER DAY))
     Route: 048
  2. IBUPROFEN. [Suspect]
     Active Substance: IBUPROFEN
     Dosage: UNK,  9.6?14.4 G/DAY OF IBUPROFEN (ABOUT 50 TABLETS PER DAY)
     Route: 048

REACTIONS (12)
  - Oesophageal stenosis [Unknown]
  - Gastric ulcer [Unknown]
  - Hypokalaemia [Recovered/Resolved]
  - Lethargy [Recovered/Resolved]
  - Potassium wasting nephropathy [Recovered/Resolved]
  - Intentional product misuse [Unknown]
  - Intentional overdose [Unknown]
  - Acute kidney injury [Recovered/Resolved]
  - Toxicity to various agents [Unknown]
  - Renal tubular acidosis [Recovered/Resolved]
  - Microcytic anaemia [Unknown]
  - Decreased appetite [Recovered/Resolved]
